FAERS Safety Report 16623641 (Version 1)
Quarter: 2019Q3

REPORT INFORMATION
  Report Type: Report from Study
  Country: CA (occurrence: CA)
  Receive Date: 20190724
  Receipt Date: 20190724
  Transmission Date: 20191004
  Serious: Yes (Other)
  Sender: FDA-Public Use
  Company Number: CA-EMD SERONO-9105635

PATIENT
  Sex: Female

DRUGS (1)
  1. SOMATROPIN. [Suspect]
     Active Substance: SOMATROPIN
     Indication: PRADER-WILLI SYNDROME
     Route: 058

REACTIONS (4)
  - Scratch [Not Recovered/Not Resolved]
  - Skin reaction [Not Recovered/Not Resolved]
  - Off label use [Not Recovered/Not Resolved]
  - Scoliosis [Not Recovered/Not Resolved]
